FAERS Safety Report 5902434-2 (Version None)
Quarter: 2008Q3

REPORT INFORMATION
  Report Type: 
  Country: None (occurrence: None)
  Receive Date: 20080929
  Receipt Date: 20080916
  Transmission Date: 20090109
  Serious: Yes (Other)
  Sender: FDA-Public Use
  Company Number: GB-ELI_LILLY_AND_COMPANY-GB200809006068

PATIENT
  Sex: Female

DRUGS (12)
  1. CYMBALTA [Suspect]
     Dosage: 60 MG, DAILY (1/D)
     Route: 064
  2. CONCERTA [Concomitant]
     Indication: ABNORMAL BEHAVIOUR
     Dosage: 18 MG, UNK
     Route: 064
     Dates: end: 20071225
  3. BECLOMETHASONE DIPROPIONATE [Concomitant]
     Dosage: 500 UG, 2/D
     Route: 064
  4. CLEXANE [Concomitant]
     Dosage: 40 MG, DAILY (1/D)
     Route: 064
  5. CODEINE PHOSPHATE [Concomitant]
     Dosage: UNK, DAILY (1/D)
     Route: 064
  6. IBUPROFEN [Concomitant]
     Dosage: 400 MG, 3/D
     Route: 064
  7. MACROGOL [Concomitant]
     Indication: CONSTIPATION
     Dosage: 13.8 G, 2/D
     Route: 064
  8. NICOTINE [Concomitant]
     Dosage: 10 MG, EVERY 16 HOURS
     Route: 064
  9. ORAMORPH SR [Concomitant]
     Dosage: 10 MG, 4/D
     Route: 064
  10. ACETAMINOPHEN [Concomitant]
     Dosage: 500 MG, 8 TIMES A DAY
     Route: 064
  11. PEPTAC                             /01521901/ [Concomitant]
     Route: 064
  12. SALBUTAMOL [Concomitant]
     Dosage: 200 UG, 4/D
     Route: 064

REACTIONS (2)
  - DRUG EXPOSURE DURING PREGNANCY [None]
  - PREMATURE BABY [None]
